FAERS Safety Report 6576647-3 (Version None)
Quarter: 2010Q1

REPORT INFORMATION
  Report Type: 
  Country: None (occurrence: None)
  Receive Date: 20100210
  Receipt Date: 20100204
  Transmission Date: 20100710
  Serious: Yes (Other)
  Sender: FDA-Public Use
  Company Number: US-SANOFI-AVENTIS-2010SA007259

PATIENT

DRUGS (2)
  1. MULTAQ [Suspect]
     Route: 048
  2. AMIODARONE HCL [Suspect]
     Route: 042

REACTIONS (1)
  - ATRIAL FIBRILLATION [None]
